APPROVED DRUG PRODUCT: GUANFACINE HYDROCHLORIDE
Active Ingredient: GUANFACINE HYDROCHLORIDE
Strength: EQ 2MG BASE
Dosage Form/Route: TABLET;ORAL
Application: A216828 | Product #002 | TE Code: AB
Applicant: I 3 PHARMACEUTICALS LLC
Approved: Oct 5, 2023 | RLD: No | RS: No | Type: RX